FAERS Safety Report 19631012 (Version 1)
Quarter: 2021Q3

REPORT INFORMATION
  Report Type: Spontaneous
  Country: US (occurrence: US)
  Receive Date: 20210728
  Receipt Date: 20210728
  Transmission Date: 20211014
  Serious: No
  Sender: FDA-Public Use
  Company Number: US-SA-2021SA246823

PATIENT
  Age: 45 Year
  Sex: Female
  Weight: 62.59 kg

DRUGS (1)
  1. AUBAGIO [Suspect]
     Active Substance: TERIFLUNOMIDE
     Indication: MULTIPLE SCLEROSIS
     Dosage: 1 DF, QD
     Route: 048
     Dates: start: 20190107

REACTIONS (3)
  - Rhinitis allergic [Unknown]
  - Anxiety [Unknown]
  - Dysphonia [Unknown]

NARRATIVE: CASE EVENT DATE: 20210720
